FAERS Safety Report 11545804 (Version 1)
Quarter: 2015Q3

REPORT INFORMATION
  Report Type: Spontaneous
  Country: GB (occurrence: GB)
  Receive Date: 20150924
  Receipt Date: 20150924
  Transmission Date: 20151125
  Serious: Yes (Other)
  Sender: FDA-Public Use
  Company Number: GB-GLAXOSMITHKLINE INC.-GB2015133380

PATIENT
  Age: 51 Year
  Sex: Male
  Weight: 103 kg

DRUGS (4)
  1. FEXOFENADINE [Concomitant]
     Active Substance: FEXOFENADINE\FEXOFENADINE HYDROCHLORIDE
  2. RELVAR ELLIPTA [Concomitant]
     Active Substance: FLUTICASONE FUROATE\VILANTEROL TRIFENATATE
  3. CROMOGLICATE SODIUM [Concomitant]
     Active Substance: CROMOLYN SODIUM
  4. AVAMYS [Suspect]
     Active Substance: FLUTICASONE FUROATE
     Indication: SEASONAL ALLERGY
     Route: 045
     Dates: start: 20150501, end: 20150906

REACTIONS (1)
  - Epistaxis [Recovered/Resolved]

NARRATIVE: CASE EVENT DATE: 20150906
